FAERS Safety Report 5888905-6 (Version None)
Quarter: 2008Q3

REPORT INFORMATION
  Report Type: 
  Country: None (occurrence: None)
  Receive Date: 20080919
  Receipt Date: 20080915
  Transmission Date: 20090109
  Serious: Yes (Death, Hospitalization, Other)
  Sender: FDA-Public Use
  Company Number: PHHY2008SE21444

PATIENT
  Sex: Male

DRUGS (7)
  1. EXJADE [Suspect]
     Indication: MYELODYSPLASTIC SYNDROME
     Dosage: 2500 MG/DAY
     Dates: start: 20080513, end: 20080530
  2. EXJADE [Suspect]
     Indication: SERUM FERRITIN INCREASED
     Dosage: 1500 MG/DAY
     Dates: start: 20080626, end: 20080714
  3. DESFERAL [Suspect]
     Dosage: 10 G/ 5 DAYS
     Dates: start: 20080131, end: 20080313
  4. ATENOLOL [Concomitant]
     Dosage: 50 MG, 0.5-1
     Dates: end: 20080313
  5. FUROSEMIDE [Concomitant]
     Dosage: 40 MG, 1-2
  6. CLINDAMYCIN HCL [Concomitant]
     Dosage: 300 MG, BID
     Dates: start: 20080317, end: 20080415
  7. FLAGYL [Concomitant]
     Dosage: 400 MG, TID
     Dates: start: 20080521, end: 20080605

REACTIONS (20)
  - ABDOMINAL DISTENSION [None]
  - ACUTE HEPATIC FAILURE [None]
  - ASCITES [None]
  - ASTHENIA [None]
  - ATRIAL FIBRILLATION [None]
  - ATRIAL FLUTTER [None]
  - BACK PAIN [None]
  - BLOOD CREATININE INCREASED [None]
  - BRAIN INJURY [None]
  - CATHETER RELATED INFECTION [None]
  - CLOSTRIDIAL INFECTION [None]
  - DYSPNOEA [None]
  - FATIGUE [None]
  - METABOLIC ACIDOSIS [None]
  - MULTI-ORGAN FAILURE [None]
  - OEDEMA PERIPHERAL [None]
  - PLEURAL EFFUSION [None]
  - PULMONARY EMBOLISM [None]
  - RENAL FAILURE [None]
  - TRANSFUSION REACTION [None]
